FAERS Safety Report 8562723 (Version 4)
Quarter: 2015Q2

REPORT INFORMATION
  Report Type: Spontaneous
  Country: US (occurrence: US)
  Receive Date: 20120515
  Receipt Date: 20150602
  Transmission Date: 20150821
  Serious: No
  Sender: FDA-Public Use
  Company Number: US-ASTRAZENECA-2012SE29740

PATIENT
  Age: 54 Year
  Sex: Male

DRUGS (2)
  1. ADVAIR HFA [Concomitant]
     Active Substance: FLUTICASONE PROPIONATE\SALMETEROL XINAFOATE
  2. SYMBICORT [Suspect]
     Active Substance: BUDESONIDE\FORMOTEROL FUMARATE DIHYDRATE
     Indication: ASTHMA
     Dosage: 2 PUFFS AT 2.30 TO 3 AM AND 1 PUFF AROUND 7-8 PM
     Route: 055
     Dates: start: 20120402

REACTIONS (7)
  - Pain in extremity [Unknown]
  - Intentional product misuse [Unknown]
  - Drug dose omission [Unknown]
  - Peripheral swelling [Unknown]
  - Wheezing [Unknown]
  - Off label use [Unknown]
  - Dry mouth [Unknown]
